FAERS Safety Report 24569049 (Version 1)
Quarter: 2024Q4

REPORT INFORMATION
  Report Type: Spontaneous
  Country: US (occurrence: None)
  Receive Date: 20241030
  Receipt Date: 20241030
  Transmission Date: 20250115
  Serious: Yes (Hospitalization, Other)
  Sender: Public
  Company Number: None

PATIENT
  Age: 19 Year
  Sex: Female
  Weight: 104 kg

DRUGS (1)
  1. HEPARIN SODIUM [Suspect]
     Active Substance: HEPARIN SODIUM
     Indication: End stage renal disease
     Dosage: OTHER FREQUENCY : EVERY TREATMENT;?OTHER ROUTE : ARTERIAL RED PORT DIALYSIS CATHETER;?
     Route: 050
     Dates: start: 20240920, end: 20241028

REACTIONS (5)
  - Chest pain [None]
  - Dyspnoea [None]
  - Infusion site pain [None]
  - Therapy cessation [None]
  - Drug hypersensitivity [None]

NARRATIVE: CASE EVENT DATE: 20241028
